FAERS Safety Report 21631823 (Version 1)
Quarter: 2022Q4

REPORT INFORMATION
  Report Type: Spontaneous
  Country: CA (occurrence: CA)
  Receive Date: 20221123
  Receipt Date: 20221123
  Transmission Date: 20230113
  Serious: Yes (Hospitalization)
  Sender: FDA-Public Use
  Company Number: None

PATIENT
  Age: 67 Year
  Sex: Female
  Weight: 63 kg

DRUGS (12)
  1. CARBOPLATIN [Suspect]
     Active Substance: CARBOPLATIN
     Indication: Breast cancer female
     Route: 042
  2. GEMZAR [Suspect]
     Active Substance: GEMCITABINE HYDROCHLORIDE
     Indication: Breast cancer female
  3. AMITRIPTYLINE [Concomitant]
     Active Substance: AMITRIPTYLINE
  4. CLONAZEPAM [Concomitant]
     Active Substance: CLONAZEPAM
  5. COLCHICINE [Concomitant]
     Active Substance: COLCHICINE
  6. DEXAMETHASONE [Concomitant]
     Active Substance: DEXAMETHASONE
     Route: 065
  7. ENOXAPARIN [Concomitant]
     Active Substance: ENOXAPARIN
  8. PANTOPRAZOLE SODIUM [Concomitant]
     Active Substance: PANTOPRAZOLE SODIUM
     Dosage: TABLET (ENTERIC- COATED)
  9. QUETIAPINE [Concomitant]
     Active Substance: QUETIAPINE
  10. NICOTINE [Concomitant]
     Active Substance: NICOTINE
     Route: 062
  11. VITAMIN D [Concomitant]
     Active Substance: VITAMIN D NOS
  12. ZOPICLONE [Concomitant]
     Active Substance: ZOPICLONE

REACTIONS (1)
  - Bone marrow failure [Recovering/Resolving]
